FAERS Safety Report 20667898 (Version 1)
Quarter: 2022Q2

REPORT INFORMATION
  Report Type: Spontaneous
  Country: US (occurrence: US)
  Receive Date: 20220404
  Receipt Date: 20220404
  Transmission Date: 20220721
  Serious: No
  Sender: FDA-Public Use
  Company Number: US-BRISTOL-MYERS SQUIBB COMPANY-2022-012241

PATIENT
  Age: 73 Year
  Sex: Male
  Weight: 75.75 kg

DRUGS (2)
  1. REVLIMID [Suspect]
     Active Substance: LENALIDOMIDE
     Indication: Plasma cell myeloma
     Dosage: QD
  2. REVLIMID [Suspect]
     Active Substance: LENALIDOMIDE
     Dosage: REVLIMID DOSE REDUCED FROM 5MG TO 2.5MG

REACTIONS (3)
  - Full blood count abnormal [Unknown]
  - Platelet count decreased [Unknown]
  - Off label use [Unknown]
